FAERS Safety Report 9912695 (Version 1)
Quarter: 2014Q1

REPORT INFORMATION
  Report Type: Spontaneous
  Country: NL (occurrence: None)
  Receive Date: 20140214
  Receipt Date: 20140214
  Transmission Date: 20141002
  Serious: Yes (Hospitalization)
  Sender: FDA-Public Use
  Company Number: 2014AP001051

PATIENT
  Age: 83 Year
  Sex: Female

DRUGS (1)
  1. METFORMIN (METFORMIN) [Suspect]

REACTIONS (3)
  - Diarrhoea [None]
  - Hypomagnesaemia [None]
  - Hypocalcaemia [None]
